FAERS Safety Report 25076270 (Version 2)
Quarter: 2025Q3

REPORT INFORMATION
  Report Type: Spontaneous
  Country: EU (occurrence: EU)
  Receive Date: 20250313
  Receipt Date: 20250728
  Transmission Date: 20251021
  Serious: Yes (Hospitalization)
  Sender: MYLAN
  Company Number: None

PATIENT
  Age: 65 Year
  Sex: Male
  Weight: 72 kg

DRUGS (7)
  1. PANTOPRAZOLE [Concomitant]
     Active Substance: PANTOPRAZOLE
     Indication: Gastrooesophageal reflux disease
     Dosage: 20 MILLIGRAM, QD (20MG/D)
     Dates: start: 20241211
  2. LEVOFLOXACIN [Suspect]
     Active Substance: LEVOFLOXACIN
     Indication: Endocarditis
     Dosage: 500 MILLIGRAM, QD (500MG/DAY)
     Dates: start: 20250106, end: 20250127
  3. FUROSEMIDE [Concomitant]
     Active Substance: FUROSEMIDE
     Indication: Oedema due to cardiac disease
     Dosage: 20 MILLIGRAM, QD (20MG/D)
     Dates: start: 20241129
  4. RAMIPRIL [Concomitant]
     Active Substance: RAMIPRIL
     Indication: Hypertension
     Dosage: 1.25 MILLIGRAM, QD (1.25MG/D)
     Dates: start: 20250109
  5. WARFARIN SODIUM [Concomitant]
     Active Substance: WARFARIN SODIUM
     Indication: Prophylaxis
     Dosage: 5 MILLIGRAM, QD (5MG/D)
     Dates: start: 20241223
  6. ALDACTONE [Concomitant]
     Active Substance: SPIRONOLACTONE
     Indication: Hypertension
     Dosage: 25 MILLIGRAM, QD (25MG/D)
     Dates: start: 20241223
  7. ASPIRIN [Concomitant]
     Active Substance: ASPIRIN
     Indication: Vascular disorder prophylaxis
     Dosage: 100 MILLIGRAM, QD (100MG/D)
     Dates: start: 20241211

REACTIONS (1)
  - Autoimmune haemolytic anaemia [Recovered/Resolved]

NARRATIVE: CASE EVENT DATE: 20250124
